FAERS Safety Report 4662631-3 (Version None)
Quarter: 2005Q2

REPORT INFORMATION
  Report Type: 
  Country: None (occurrence: None)
  Receive Date: 20050512
  Receipt Date: 20050421
  Transmission Date: 20051028
  Serious: Yes (Hospitalization)
  Sender: FDA-Public Use
  Company Number: EWC050443716

PATIENT
  Age: 51 Year
  Sex: Female

DRUGS (9)
  1. OLANZAPINE [Suspect]
     Indication: BIPOLAR DISORDER
     Dosage: 10 MG/1 DAY
     Dates: start: 20000601, end: 20050216
  2. LITHIUM [Concomitant]
  3. HALOPERIDOL [Concomitant]
  4. CHLORPROMAZINE HCL [Concomitant]
  5. NOZINAN (LEVOMEPROMAZINE HYDROCHLORIDE) [Concomitant]
  6. HALCION [Concomitant]
  7. SEROQUEL [Concomitant]
  8. LORAZEPAM [Concomitant]
  9. FLURAZEPAM [Concomitant]

REACTIONS (5)
  - AGGRESSION [None]
  - INSOMNIA [None]
  - PARADOXICAL DRUG REACTION [None]
  - PHYSICAL ASSAULT [None]
  - TENSION [None]
